FAERS Safety Report 9277906 (Version 1)
Quarter: 2013Q2

REPORT INFORMATION
  Report Type: Spontaneous
  Country: US (occurrence: US)
  Receive Date: 20130508
  Receipt Date: 20130508
  Transmission Date: 20140414
  Serious: Yes (Hospitalization)
  Sender: FDA-Public Use
  Company Number: PHEH2013US010017

PATIENT
  Age: 17 Year
  Sex: Female

DRUGS (6)
  1. TRILEPTAL [Suspect]
  2. CONCERTA [Suspect]
     Dosage: UNK UKN, UNK
  3. ABILIFY [Suspect]
     Dosage: UNK UKN, UNK
  4. ABILIFY [Suspect]
     Dosage: UNK UKN, UNK
  5. LEXAPRO [Suspect]
     Dosage: UNK UKN, UNK
  6. SAPHRIS [Suspect]
     Dosage: UNK UKN, UNK

REACTIONS (5)
  - Adverse reaction [Unknown]
  - Fatigue [Unknown]
  - Drug ineffective [Unknown]
  - Feeling abnormal [Unknown]
  - Crying [Unknown]
